FAERS Safety Report 14964799 (Version 1)
Quarter: 2018Q2

REPORT INFORMATION
  Report Type: Spontaneous
  Country: US (occurrence: US)
  Receive Date: 20180601
  Receipt Date: 20180601
  Transmission Date: 20180711
  Serious: Yes (Other)
  Sender: FDA-Public Use
  Company Number: US-JNJFOC-20180533719

PATIENT
  Age: 79 Year
  Sex: Male
  Weight: 102.97 kg

DRUGS (14)
  1. XARELTO [Suspect]
     Active Substance: RIVAROXABAN
     Indication: ATRIAL FIBRILLATION
     Route: 048
  2. METOPROLOL TARTRATE. [Concomitant]
     Active Substance: METOPROLOL TARTRATE
     Route: 048
  3. XARELTO [Suspect]
     Active Substance: RIVAROXABAN
     Indication: CEREBROVASCULAR ACCIDENT PROPHYLAXIS
     Dosage: 1 TABLET EVERYDAY FOR 90 DAYS
     Route: 048
     Dates: start: 20180509
  4. OMEPRAZOLE. [Concomitant]
     Active Substance: OMEPRAZOLE
     Dosage: ONE CAPSULE TWICE A DAY FOR 30 DAYS
     Route: 048
  5. NYAMYC [Concomitant]
     Active Substance: NYSTATIN
     Route: 061
  6. XARELTO [Suspect]
     Active Substance: RIVAROXABAN
     Indication: ATRIAL FIBRILLATION
     Dosage: 1 TABLET EVERYDAY FOR 90 DAYS
     Route: 048
     Dates: start: 20180509
  7. LISINOPRIL. [Concomitant]
     Active Substance: LISINOPRIL
     Route: 065
  8. NITROSTAT [Concomitant]
     Active Substance: NITROGLYCERIN
     Route: 060
  9. HYDROCHLOROTHIAZIDE. [Concomitant]
     Active Substance: HYDROCHLOROTHIAZIDE
     Dosage: I CAPSULE BY MOUTH ONCE DAILY FOR 90 DAYS
     Route: 048
  10. FLECAINIDE [Concomitant]
     Active Substance: FLECAINIDE
     Route: 048
  11. FLUTICASONE. [Concomitant]
     Active Substance: FLUTICASONE
     Dosage: 2 SPRAYS AS NEEDED FOR 60 DAYS
     Route: 045
  12. XARELTO [Suspect]
     Active Substance: RIVAROXABAN
     Indication: CEREBROVASCULAR ACCIDENT PROPHYLAXIS
     Route: 048
  13. HYDROCORTISONE. [Concomitant]
     Active Substance: HYDROCORTISONE
     Route: 061
  14. ROSUVASTATIN. [Concomitant]
     Active Substance: ROSUVASTATIN
     Route: 048

REACTIONS (4)
  - Sinus bradycardia [Unknown]
  - Essential hypertension [Unknown]
  - Hallucination [Unknown]
  - Atrial fibrillation [Recovered/Resolved]

NARRATIVE: CASE EVENT DATE: 20180215
